FAERS Safety Report 6479456-9 (Version None)
Quarter: 2009Q4

REPORT INFORMATION
  Report Type: 
  Country: None (occurrence: None)
  Receive Date: 20091208
  Receipt Date: 20091126
  Transmission Date: 20100525
  Serious: Yes (Life-Threatening)
  Sender: FDA-Public Use
  Company Number: AU-RANBAXY-2009US-29540

PATIENT

DRUGS (1)
  1. VERAPAMIL [Suspect]
     Indication: DRUG USE FOR UNKNOWN INDICATION
     Dosage: UNK, UNK
     Route: 065

REACTIONS (1)
  - BRADYARRHYTHMIA [None]
